FAERS Safety Report 6794649-9 (Version None)
Quarter: 2010Q2

REPORT INFORMATION
  Report Type: 
  Country: None (occurrence: None)
  Receive Date: 20100625
  Receipt Date: 20100621
  Transmission Date: 20101027
  Serious: Yes (Life-Threatening, Hospitalization, Other)
  Sender: FDA-Public Use
  Company Number: IE-WYE-G04559309

PATIENT
  Sex: Female

DRUGS (2)
  1. VENLAFAXINE HYDROCHLORIDE [Suspect]
     Dosage: 300 MG (FREUQUENCY UNKNOWN)
     Route: 048
     Dates: start: 20090101, end: 20091004
  2. ZYPREXA [Concomitant]
     Route: 048
     Dates: start: 20090709

REACTIONS (4)
  - EPILEPSY [None]
  - FALL [None]
  - LOSS OF CONSCIOUSNESS [None]
  - SENSORY DISTURBANCE [None]
